FAERS Safety Report 12677674 (Version 2)
Quarter: 2016Q3

REPORT INFORMATION
  Report Type: Spontaneous
  Country: AU (occurrence: AU)
  Receive Date: 20160823
  Receipt Date: 20160901
  Transmission Date: 20161109
  Serious: Yes (Other)
  Sender: FDA-Public Use
  Company Number: AU-BAXTER-2016BAX042401

PATIENT
  Sex: Female

DRUGS (11)
  1. BAXTER 0.9% SODIUM CHLORIDE 9G_L INJECTION BP BAG AHB1324 [Suspect]
     Active Substance: SODIUM CHLORIDE
     Dosage: IV INFUSION VIA PICC LINE
     Route: 042
  2. STERILE WATER [Suspect]
     Active Substance: WATER
     Dosage: IV INFUSION VIA PICC LINE
     Route: 042
     Dates: end: 20160806
  3. BAXTER 0.9% SODIUM CHLORIDE 9G_L INJECTION BP BAG AHB1324 [Suspect]
     Active Substance: SODIUM CHLORIDE
     Indication: MEDICATION DILUTION
     Dosage: IV INFUSION VIA PICC LINE
     Route: 042
     Dates: start: 20160716
  4. VANCOMYCIN DBL [Suspect]
     Active Substance: VANCOMYCIN
     Indication: STAPHYLOCOCCAL INFECTION
     Dosage: IV INFUSION VIA PICC LINE
     Route: 042
     Dates: start: 20160716
  5. VANCOMYCIN DBL [Suspect]
     Active Substance: VANCOMYCIN
     Indication: MASS
     Dosage: IV INFUSION VIA PICC LINE (REDUCED DOSE)
     Route: 042
  6. STERILE WATER [Suspect]
     Active Substance: WATER
     Dosage: IV INFUSION VIA PICC LINE
     Route: 042
  7. VANCOMYCIN DBL [Suspect]
     Active Substance: VANCOMYCIN
     Indication: POSTOPERATIVE WOUND INFECTION
  8. BAXTER 0.9% SODIUM CHLORIDE 9G_L INJECTION BP BAG AHB1324 [Suspect]
     Active Substance: SODIUM CHLORIDE
     Dosage: IV INFUSION VIA PICC LINE
     Route: 042
     Dates: end: 20160806
  9. VANCOMYCIN DBL [Suspect]
     Active Substance: VANCOMYCIN
     Indication: PROPIONIBACTERIUM INFECTION
     Dosage: IV INFUSION VIA PICC LINE (INCREASED AGAIN)
     Route: 042
     Dates: end: 20160806
  10. STERILE WATER [Suspect]
     Active Substance: WATER
     Indication: MEDICATION DILUTION
     Dosage: IV INFUSION VIA PICC LINE
     Route: 042
     Dates: start: 20160716
  11. LYRICA [Concomitant]
     Active Substance: PREGABALIN
     Indication: PAIN
     Route: 048
     Dates: start: 20160701

REACTIONS (7)
  - Butterfly rash [Recovered/Resolved]
  - Rash erythematous [Recovered/Resolved]
  - Drug level increased [Recovered/Resolved]
  - Abdominal pain [Recovered/Resolved]
  - Pyrexia [Recovered/Resolved]
  - Urticaria [Recovered/Resolved]
  - Constipation [Recovered/Resolved]
